FAERS Safety Report 5774362-7 (Version None)
Quarter: 2008Q2

REPORT INFORMATION
  Report Type: 
  Country: None (occurrence: None)
  Receive Date: 20080616
  Receipt Date: 20080604
  Transmission Date: 20081010
  Serious: Yes (Other)
  Sender: FDA-Public Use
  Company Number: US-PFIZER INC-2008047394

PATIENT
  Sex: Male
  Weight: 88.181 kg

DRUGS (2)
  1. CAVERJECT [Suspect]
     Indication: ERECTILE DYSFUNCTION
  2. FLOMAX [Concomitant]

REACTIONS (3)
  - DEVICE MALFUNCTION [None]
  - HYPERTENSION [None]
  - NERVOUSNESS [None]
